FAERS Safety Report 4652726-2 (Version None)
Quarter: 2005Q2

REPORT INFORMATION
  Report Type: 
  Country: None (occurrence: None)
  Receive Date: 20050502
  Receipt Date: 20050419
  Transmission Date: 20051028
  Serious: Yes (Death, Hospitalization, Other)
  Sender: FDA-Public Use
  Company Number: 2005046958

PATIENT
  Age: 11 Month
  Sex: Female
  Weight: 10 kg

DRUGS (3)
  1. PREDNISONE [Suspect]
     Indication: HISTIOCYTOSIS HAEMATOPHAGIC
  2. SOLU-MEDROL [Suspect]
     Indication: DEMYELINATION
     Dosage: 300 MG (300 MG, 1 IN 1 D)
     Dates: start: 20030828, end: 20030829
  3. LUGOL (IODINE, POTASSIUM IODIDE) [Concomitant]

REACTIONS (15)
  - BLOOD PRESSURE SYSTOLIC DECREASED [None]
  - BRAIN OEDEMA [None]
  - CEREBELLAR ATAXIA [None]
  - CONDITION AGGRAVATED [None]
  - CONVULSION [None]
  - CSF CELL COUNT INCREASED [None]
  - CSF PROTEIN INCREASED [None]
  - DEMYELINATION [None]
  - DEPRESSED LEVEL OF CONSCIOUSNESS [None]
  - HEPATIC FUNCTION ABNORMAL [None]
  - NASOPHARYNGITIS [None]
  - NUCLEAR MAGNETIC RESONANCE IMAGING BRAIN ABNORMAL [None]
  - PYREXIA [None]
  - RESPIRATION ABNORMAL [None]
  - RESPIRATORY DISORDER [None]
